FAERS Safety Report 6036501-2 (Version None)
Quarter: 2009Q1

REPORT INFORMATION
  Report Type: 
  Country: None (occurrence: None)
  Receive Date: 20090112
  Receipt Date: 20090106
  Transmission Date: 20090719
  Serious: Yes (Hospitalization)
  Sender: FDA-Public Use
  Company Number: FABR-1000429

PATIENT
  Age: 60 Year
  Sex: Male
  Weight: 49.2 kg

DRUGS (11)
  1. FABRAZYME [Suspect]
     Indication: FABRY'S DISEASE
     Dosage: 1 MG/KG, Q2W, INTRAVENOUS
     Route: 042
     Dates: start: 20080723
  2. GABAPENTIN [Concomitant]
  3. ATORVASTATIN CALCIUM [Concomitant]
  4. RAMIPRIL [Concomitant]
  5. ASPIRIN [Concomitant]
  6. ALENDRONAT (ALENDRONATE SODIUM) [Concomitant]
  7. ADCAL-D3 (CALCIUM CARBONATE, COLECALCIFEROL) [Concomitant]
  8. ERYTHROPOIETIN (ERYTHROPOIETIN) [Concomitant]
  9. LANZOPRAZOL (LANSOPRAZOLE) [Concomitant]
  10. SIMVASTATIN [Concomitant]
  11. AMITRIPTYLINE HYDROCHLORIDE [Concomitant]

REACTIONS (9)
  - ATRIOVENTRICULAR BLOCK [None]
  - DIALYSIS [None]
  - DIVERTICULAR PERFORATION [None]
  - FALL [None]
  - GASTROINTESTINAL HAEMORRHAGE [None]
  - INTESTINAL PERFORATION [None]
  - LOSS OF CONSCIOUSNESS [None]
  - RENAL FAILURE ACUTE [None]
  - SICK SINUS SYNDROME [None]
